FAERS Safety Report 6745657-5 (Version None)
Quarter: 2010Q2

REPORT INFORMATION
  Report Type: 
  Country: None (occurrence: None)
  Receive Date: 20100528
  Receipt Date: 20100521
  Transmission Date: 20101027
  Serious: Yes (Other)
  Sender: FDA-Public Use
  Company Number: US-ASTRAZENECA-2010SE23890

PATIENT
  Age: 589 Month
  Sex: Female
  Weight: 149.7 kg

DRUGS (7)
  1. SYMBICORT [Suspect]
     Indication: ASTHMA
     Dosage: 160/4.5, 2 PUFFS
     Route: 055
     Dates: start: 20070101
  2. PREDNISONE TAB [Concomitant]
  3. XOPENEX [Concomitant]
  4. VENTOLIN [Concomitant]
  5. DICLOFENAC [Concomitant]
  6. TRAMADOL HCL [Concomitant]
  7. PERCOCET [Concomitant]

REACTIONS (5)
  - DYSPHAGIA [None]
  - GALLBLADDER OPERATION [None]
  - GASTROOESOPHAGEAL REFLUX DISEASE [None]
  - THROAT IRRITATION [None]
  - WEIGHT INCREASED [None]
